FAERS Safety Report 9520665 (Version 2)
Quarter: 2013Q3

REPORT INFORMATION
  Report Type: Spontaneous
  Country: CH (occurrence: CH)
  Receive Date: 20130913
  Receipt Date: 20130913
  Transmission Date: 20140515
  Serious: Yes (Other)
  Sender: FDA-Public Use
  Company Number: CH-009507513-1308CHE003968

PATIENT
  Age: 59 Year
  Sex: Male

DRUGS (6)
  1. COSOPT-S MONODOSIS [Suspect]
     Dosage: STRENGTH: 20/5 MG/ML
     Route: 047
  2. DEXAFREE [Concomitant]
     Route: 047
  3. VOLTAREN [Concomitant]
  4. SAFLUTAN [Concomitant]
     Dosage: STRENGTH: 15 UG/ML
     Route: 047
  5. FLOXAL [Concomitant]
     Route: 047
  6. LACRYCON [Concomitant]
     Dosage: STRENGTH: 0.092MG/0.65ML
     Route: 047

REACTIONS (1)
  - Blindness [Unknown]
